FAERS Safety Report 11482841 (Version 2)
Quarter: 2020Q3

REPORT INFORMATION
  Report Type: Spontaneous
  Country: US (occurrence: US)
  Receive Date: 20150909
  Receipt Date: 20200921
  Transmission Date: 20201102
  Serious: No
  Sender: FDA-Public Use
  Company Number: US-JAZZ-JPI-P-026123

PATIENT
  Age: 34 Year
  Sex: Female

DRUGS (30)
  1. XYREM [Suspect]
     Active Substance: SODIUM OXYBATE
     Dosage: 4 G, SECOND
     Route: 048
     Dates: start: 2014
  2. VENLAFAXINE HCL [Concomitant]
     Active Substance: VENLAFAXINE HYDROCHLORIDE
  3. ALEVE [Concomitant]
     Active Substance: NAPROXEN SODIUM
  4. ZOFRAN [Concomitant]
     Active Substance: ONDANSETRON HYDROCHLORIDE
  5. IBUPROFEN. [Concomitant]
     Active Substance: IBUPROFEN
  6. XYREM [Suspect]
     Active Substance: SODIUM OXYBATE
     Dosage: 4.5 G, FIRST
     Route: 048
     Dates: start: 2014
  7. RELPAX [Concomitant]
     Active Substance: ELETRIPTAN HYDROBROMIDE
  8. PROMETHAZINE [Concomitant]
     Active Substance: PROMETHAZINE HYDROCHLORIDE
  9. CHLORPROMAZINE. [Concomitant]
     Active Substance: CHLORPROMAZINE
  10. BENADRYL ALLERGY [Concomitant]
     Active Substance: DIPHENHYDRAMINE HYDROCHLORIDE
  11. BUSPIRONE HCL [Concomitant]
     Active Substance: BUSPIRONE HYDROCHLORIDE
  12. FROVA [Concomitant]
     Active Substance: FROVATRIPTAN SUCCINATE
  13. VITAMIN B12 [Concomitant]
     Active Substance: CYANOCOBALAMIN
  14. XYREM [Suspect]
     Active Substance: SODIUM OXYBATE
     Indication: CATAPLEXY
     Dosage: 3 G, BID
     Route: 048
     Dates: start: 201111, end: 2012
  15. XYREM [Suspect]
     Active Substance: SODIUM OXYBATE
     Indication: SOMNOLENCE
     Dosage: DOSE ADJUSTMENTS
     Route: 048
  16. ALPRAZOLAM. [Concomitant]
     Active Substance: ALPRAZOLAM
  17. ZYRTEC [Concomitant]
     Active Substance: CETIRIZINE HYDROCHLORIDE
  18. HYDROCODONE/ACETAMINOPHEN [Concomitant]
     Active Substance: ACETAMINOPHEN\HYDROCODONE
  19. BIOTIN [Concomitant]
     Active Substance: BIOTIN
  20. FLONASE [MOMETASONE FUROATE] [Concomitant]
     Active Substance: MOMETASONE FUROATE
  21. XYREM [Suspect]
     Active Substance: SODIUM OXYBATE
     Indication: NARCOLEPSY
     Dosage: 2.25 G, BID
     Route: 048
     Dates: start: 20110622, end: 2011
  22. XYREM [Suspect]
     Active Substance: SODIUM OXYBATE
     Dosage: LOWERED DOSE
     Route: 048
     Dates: start: 2013, end: 2013
  23. XYREM [Suspect]
     Active Substance: SODIUM OXYBATE
     Dosage: 4.5 G, BID
     Route: 048
     Dates: start: 201404, end: 201407
  24. TOPAMAX [Concomitant]
     Active Substance: TOPIRAMATE
  25. AMITRIPTYLINE HCL [Concomitant]
     Active Substance: AMITRIPTYLINE
  26. VERAPAMIL [Concomitant]
     Active Substance: VERAPAMIL HYDROCHLORIDE
  27. MIRENA [Concomitant]
     Active Substance: LEVONORGESTREL
  28. SPRINTEC [Concomitant]
     Active Substance: ETHINYL ESTRADIOL\NORGESTIMATE
  29. OCELLA [Concomitant]
     Active Substance: DROSPIRENONE\ETHINYL ESTRADIOL
  30. PROPRANOLOL [Concomitant]
     Active Substance: PROPRANOLOL HYDROCHLORIDE

REACTIONS (3)
  - Anxiety [Unknown]
  - Nausea [Unknown]
  - Exposure during pregnancy [Unknown]

NARRATIVE: CASE EVENT DATE: 2012
